FAERS Safety Report 21123952 (Version 2)
Quarter: 2022Q3

REPORT INFORMATION
  Report Type: Report from Study
  Country: US (occurrence: US)
  Receive Date: 20220725
  Receipt Date: 20220922
  Transmission Date: 20221027
  Serious: Yes (Other)
  Sender: FDA-Public Use
  Company Number: US-GBT-014470

PATIENT
  Age: 25 Year
  Sex: Male

DRUGS (5)
  1. OXBRYTA [Suspect]
     Active Substance: VOXELOTOR
     Indication: Sickle cell anaemia with crisis
     Dates: start: 20210512, end: 20210601
  2. HYDROXYUREA [Concomitant]
     Active Substance: HYDROXYUREA
     Indication: Sickle cell disease
     Route: 048
     Dates: start: 2011
  3. FOLIC ACID [Concomitant]
     Active Substance: FOLIC ACID
     Indication: Sickle cell disease
     Route: 048
     Dates: start: 2011
  4. PSEUDOEPHEDRINE [Concomitant]
     Active Substance: PSEUDOEPHEDRINE
     Indication: Priapism
     Route: 048
     Dates: start: 2019
  5. LEVETIRACETAM [Concomitant]
     Active Substance: LEVETIRACETAM
     Indication: Product used for unknown indication
     Route: 048
     Dates: start: 2016

REACTIONS (1)
  - Priapism [Recovered/Resolved]

NARRATIVE: CASE EVENT DATE: 20210601
